FAERS Safety Report 6673039-3 (Version None)
Quarter: 2010Q2

REPORT INFORMATION
  Report Type: 
  Country: None (occurrence: None)
  Receive Date: 20100408
  Receipt Date: 20100331
  Transmission Date: 20101027
  Serious: Yes (Other)
  Sender: FDA-Public Use
  Company Number: PHHY2010JP19914

PATIENT
  Sex: Male

DRUGS (4)
  1. TEGRETOL [Suspect]
     Indication: TRIGEMINAL NEURALGIA
     Dosage: 100 MG, BID, ONE TABLET IN THE MORNING AND ONE TABLET IN THE EVENING
     Route: 048
     Dates: start: 20090901
  2. TEGRETOL [Suspect]
     Dosage: 100 MG, QD
     Route: 048
  3. TEGRETOL [Suspect]
     Dosage: 200 MG, QD
     Route: 048
  4. HARNAL [Suspect]
     Dosage: UNK
     Route: 048

REACTIONS (6)
  - BLOOD PRESSURE DECREASED [None]
  - CATARACT [None]
  - GAMMA-GLUTAMYLTRANSFERASE INCREASED [None]
  - POLLAKIURIA [None]
  - VISION BLURRED [None]
  - VISUAL ACUITY REDUCED [None]
